FAERS Safety Report 10204223 (Version 5)
Quarter: 2015Q1

REPORT INFORMATION
  Report Type: Report from Study
  Country: US (occurrence: US)
  Receive Date: 20140529
  Receipt Date: 20150102
  Transmission Date: 20150720
  Serious: Yes (Hospitalization, Other)
  Sender: FDA-Public Use
  Company Number: US-SA-2013SA044708

PATIENT
  Age: 41 Year
  Sex: Male
  Weight: 58 kg

DRUGS (3)
  1. AUBAGIO [Suspect]
     Active Substance: TERIFLUNOMIDE
     Indication: MULTIPLE SCLEROSIS
     Route: 048
     Dates: start: 20130207, end: 20130711
  2. AUBAGIO [Suspect]
     Active Substance: TERIFLUNOMIDE
     Indication: MULTIPLE SCLEROSIS
     Route: 048
     Dates: start: 20131217, end: 20141219
  3. GABAPENTIN. [Concomitant]
     Active Substance: GABAPENTIN

REACTIONS (21)
  - Speech disorder [Not Recovered/Not Resolved]
  - Diarrhoea [Unknown]
  - Decreased appetite [Not Recovered/Not Resolved]
  - Ocular hyperaemia [Unknown]
  - Depression [Not Recovered/Not Resolved]
  - Blood glucose decreased [Not Recovered/Not Resolved]
  - Paraesthesia [Unknown]
  - Gait disturbance [Unknown]
  - Hypoaesthesia [Unknown]
  - Unevaluable event [Unknown]
  - Weight decreased [Not Recovered/Not Resolved]
  - Memory impairment [Not Recovered/Not Resolved]
  - Blindness unilateral [Unknown]
  - Visual impairment [Unknown]
  - Malaise [Not Recovered/Not Resolved]
  - Hyperhidrosis [Not Recovered/Not Resolved]
  - Violence-related symptom [Not Recovered/Not Resolved]
  - Dysuria [Not Recovered/Not Resolved]
  - Cataract [Unknown]
  - Suicidal ideation [Not Recovered/Not Resolved]
  - Urinary tract infection [Unknown]

NARRATIVE: CASE EVENT DATE: 201412
